FAERS Safety Report 4413207-4 (Version None)
Quarter: 2004Q3

REPORT INFORMATION
  Report Type: 
  Country: None (occurrence: None)
  Receive Date: 20040730
  Receipt Date: 20040730
  Transmission Date: 20050211
  Serious: No
  Sender: FDA-Public Use
  Company Number: None

PATIENT
  Age: 54 Year
  Weight: 97.5234 kg

DRUGS (3)
  1. XANAX [Suspect]
     Indication: POST PROCEDURAL PAIN
     Dosage: 0.25 MG X 2 PO
     Route: 048
     Dates: start: 20040613, end: 20040614
  2. MORPHINE [Suspect]
  3. PERCOCET [Suspect]

REACTIONS (7)
  - ANXIETY [None]
  - CARDIO-RESPIRATORY ARREST [None]
  - EMOTIONAL DISTRESS [None]
  - LOSS OF CONSCIOUSNESS [None]
  - MEDICATION ERROR [None]
  - PROCEDURAL COMPLICATION [None]
  - SEDATION [None]
